FAERS Safety Report 8935156 (Version 2)
Quarter: 2018Q3

REPORT INFORMATION
  Report Type: Report from Study
  Country: IE (occurrence: IE)
  Receive Date: 20121129
  Receipt Date: 20180712
  Transmission Date: 20181010
  Serious: Yes (Hospitalization)
  Sender: FDA-Public Use
  Company Number: PHHO2011IE16908

PATIENT

DRUGS (14)
  1. AFINITOR [Suspect]
     Active Substance: EVEROLIMUS
     Dosage: UNK
     Route: 048
     Dates: start: 20111007
  2. COMPARATOR PACLITAXEL [Suspect]
     Active Substance: PACLITAXEL
     Dosage: UNK
     Route: 041
     Dates: start: 20111014
  3. DOCUSATE SODIUM. [Concomitant]
     Active Substance: DOCUSATE SODIUM
     Dosage: 200 MG, BID
     Dates: start: 20110912, end: 20111004
  4. MST [Concomitant]
     Active Substance: MORPHINE SULFATE\NALTREXONE HYDROCHLORIDE
     Indication: ANALGESIC THERAPY
     Dosage: 20 MG, BID
     Route: 048
     Dates: start: 201108, end: 20111004
  5. VALOID ORAL [Concomitant]
     Dosage: 50 MG, TID
     Route: 048
     Dates: start: 201109
  6. SENNA [Concomitant]
     Active Substance: SENNA LEAF\SENNOSIDES\SENNOSIDES A AND B
     Dosage: UNK AT NIGHT
     Dates: start: 20110908, end: 20111004
  7. AFINITOR [Suspect]
     Active Substance: EVEROLIMUS
     Indication: BREAST CANCER METASTATIC
     Dosage: UNK
     Route: 048
     Dates: start: 20110930, end: 20111003
  8. LOSEC [Concomitant]
     Active Substance: OMEPRAZOLE
     Indication: NAUSEA
     Dosage: 30 MG, QD
     Route: 048
     Dates: start: 201109
  9. DEXAMETHASONE. [Concomitant]
     Active Substance: DEXAMETHASONE
     Dosage: 4 MG, QD
     Route: 048
     Dates: start: 201109
  10. COMPARATOR TRASTUZUMAB [Suspect]
     Active Substance: TRASTUZUMAB
     Indication: BREAST CANCER METASTATIC
     Dosage: UNK
     Route: 041
     Dates: start: 20110930
  11. COMPARATOR PACLITAXEL [Suspect]
     Active Substance: PACLITAXEL
     Indication: BREAST CANCER METASTATIC
     Dosage: UNK
     Route: 041
     Dates: start: 20110930
  12. SECONAL [Concomitant]
     Active Substance: SECOBARBITAL
     Indication: ANALGESIC THERAPY
     Dosage: 5?10 MG
     Route: 048
     Dates: start: 20110804
  13. MORPHINE [Concomitant]
     Active Substance: MORPHINE
     Dosage: 3 ML, UNK
     Dates: start: 20111216
  14. LYRICA [Concomitant]
     Active Substance: PREGABALIN
     Indication: ANALGESIC THERAPY
     Dosage: 25 MG, BID
     Route: 048
     Dates: start: 201108

REACTIONS (4)
  - Dehydration [Recovered/Resolved]
  - Diarrhoea [Recovered/Resolved]
  - Mucosal inflammation [Recovered/Resolved]
  - Nausea [Recovered/Resolved]

NARRATIVE: CASE EVENT DATE: 20111002
